FAERS Safety Report 24027080 (Version 2)
Quarter: 2024Q3

REPORT INFORMATION
  Report Type: Report from Study
  Country: RS (occurrence: RS)
  Receive Date: 20240628
  Receipt Date: 20240710
  Transmission Date: 20241017
  Serious: No
  Sender: ROCHE
  Company Number: RS-ROCHE-3560789

PATIENT
  Age: 75 Year
  Sex: Female
  Weight: 62.0 kg

DRUGS (6)
  1. ALECTINIB [Suspect]
     Active Substance: ALECTINIB
     Indication: Non-small cell lung cancer metastatic
     Route: 048
     Dates: start: 20221019
  2. ALECTINIB [Suspect]
     Active Substance: ALECTINIB
     Route: 048
     Dates: start: 20200721
  3. PREDNISONE [Concomitant]
     Active Substance: PREDNISONE
     Dates: start: 20230809, end: 20230809
  4. PREDNISONE [Concomitant]
     Active Substance: PREDNISONE
     Dates: start: 20230812, end: 20230814
  5. PREDNISONE [Concomitant]
     Active Substance: PREDNISONE
     Dates: start: 20230815, end: 20230817
  6. PREDNISONE [Concomitant]
     Active Substance: PREDNISONE
     Dates: start: 20230818, end: 20230820

REACTIONS (1)
  - Leukopenia [Recovered/Resolved]

NARRATIVE: CASE EVENT DATE: 20230809
